FAERS Safety Report 13011686 (Version 2)
Quarter: 2016Q4

REPORT INFORMATION
  Report Type: Spontaneous
  Country: US (occurrence: US)
  Receive Date: 20161209
  Receipt Date: 20161215
  Transmission Date: 20170207
  Serious: Yes (Other)
  Sender: FDA-Public Use
  Company Number: US-SUN PHARMACEUTICAL INDUSTRIES LTD-2016US-129153

PATIENT
  Sex: Female

DRUGS (6)
  1. OCTREOTIDE LAR [Concomitant]
     Active Substance: OCTREOTIDE
     Indication: PRODUCT USED FOR UNKNOWN INDICATION
     Dosage: 30 MG, MONTHLY
     Route: 065
     Dates: start: 2013
  2. CAPECITABINE. [Suspect]
     Active Substance: CAPECITABINE
     Indication: ACTH-PRODUCING PITUITARY TUMOUR
     Dosage: DAYS 1-14
     Route: 065
     Dates: start: 201312
  3. HYDROCORTISONE. [Concomitant]
     Active Substance: HYDROCORTISONE
     Indication: PRODUCT USED FOR UNKNOWN INDICATION
     Dosage: 10 MG, BID
     Route: 065
     Dates: start: 201109
  4. DESMOPRESSIN [Concomitant]
     Active Substance: DESMOPRESSIN
     Indication: DIABETES INSIPIDUS
     Dosage: UNK
     Route: 065
     Dates: start: 2011
  5. TEMOZOLOMIDE. [Suspect]
     Active Substance: TEMOZOLOMIDE
     Indication: ACTH-PRODUCING PITUITARY TUMOUR
     Dosage: DAY 10-14
     Route: 065
     Dates: start: 201312
  6. OCTREOTIDE LAR [Concomitant]
     Active Substance: OCTREOTIDE
     Indication: PRODUCT USED FOR UNKNOWN INDICATION
     Dosage: 60 MG, MONTHLY
     Route: 065
     Dates: start: 2013

REACTIONS (2)
  - Thrombocytopenia [Unknown]
  - Overdose [Unknown]
